FAERS Safety Report 6600492-3 (Version None)
Quarter: 2010Q1

REPORT INFORMATION
  Report Type: 
  Country: None (occurrence: None)
  Receive Date: 20100223
  Receipt Date: 20100223
  Transmission Date: 20100710
  Serious: Yes (Hospitalization, Other)
  Sender: FDA-Public Use
  Company Number: None

PATIENT
  Age: 61 Year
  Sex: Female
  Weight: 103.8737 kg

DRUGS (3)
  1. FOSAMAX [Suspect]
     Indication: OSTEOPENIA
     Dosage: 1 TABLET DAILY UNTIL WEEKLY
     Dates: start: 19970601, end: 20040601
  2. ALENDRONATE SODIUM [Suspect]
     Indication: OSTEOPENIA
     Dosage: 1 TABLET WEEKLY
     Dates: start: 20040601, end: 20091005
  3. ALENDRONATE SODIUM [Suspect]
     Indication: OSTEOPOROSIS
     Dosage: 1 TABLET WEEKLY
     Dates: start: 20040601, end: 20091005

REACTIONS (1)
  - FEMUR FRACTURE [None]
